FAERS Safety Report 10077569 (Version 2)
Quarter: 2014Q2

REPORT INFORMATION
  Report Type: Spontaneous
  Country: US (occurrence: US)
  Receive Date: 20140414
  Receipt Date: 20140414
  Transmission Date: 20141212
  Serious: No
  Sender: FDA-Public Use
  Company Number: US-BANPHARM-20131837

PATIENT
  Age: 81 Year
  Sex: Female
  Weight: 60.78 kg

DRUGS (5)
  1. ALEVE LIQUID GELS 220 MG [Suspect]
     Indication: ARTHRALGIA
     Dosage: 1 DF, BID,
     Route: 048
     Dates: start: 20131018
  2. LISINOPRIL 10 MILLIGRAMS [Concomitant]
  3. SIMVASTATIN [Concomitant]
  4. CENTRUM SILVER [Concomitant]
  5. CALCIUM 600 PLUS VITAMIN D [Concomitant]

REACTIONS (3)
  - Blood pressure increased [Unknown]
  - Blood pressure increased [Unknown]
  - Blood pressure increased [Unknown]
